FAERS Safety Report 11371457 (Version 1)
Quarter: 2015Q3

REPORT INFORMATION
  Report Type: Spontaneous
  Country: FR (occurrence: FR)
  Receive Date: 20150812
  Receipt Date: 20150812
  Transmission Date: 20151125
  Serious: Yes (Hospitalization)
  Sender: FDA-Public Use
  Company Number: FR-PFIZER INC-2015263934

PATIENT
  Age: 47 Year
  Sex: Male
  Weight: 49 kg

DRUGS (9)
  1. INEXIUM /01479302/ [Concomitant]
     Active Substance: ESOMEPRAZOLE MAGNESIUM
     Dosage: 20 MG, 1X/DAY IN THE EVENING
     Route: 048
     Dates: start: 20150505
  2. SPASFON /00765801/ [Concomitant]
     Active Substance: PHLOROGLUCINOL\1,3,5-TRIMETHOXYBENZENE
     Dosage: 1 DF, 3X/DAY (MORNING, NOON, EVENING)
     Route: 048
     Dates: start: 20150505
  3. ALGINATE [Concomitant]
     Dosage: 1 DF, 3X/DAY (MORNING, NOON, EVENING)
     Route: 048
  4. NOCTAMIDE [Concomitant]
     Active Substance: LORMETAZEPAM
     Dosage: 2 DF OF 1MG, 1X/DAY IN THE EVENING
     Route: 048
     Dates: start: 20150505
  5. XANAX [Suspect]
     Active Substance: ALPRAZOLAM
     Dosage: 0.5 MG, 1X/DAY IN THE EVENING
     Route: 048
     Dates: start: 20150505, end: 20150514
  6. IXPRIM [Suspect]
     Active Substance: ACETAMINOPHEN\TRAMADOL HYDROCHLORIDE
     Dosage: 1 DF OF 37.5/325 MG, 3X/DAY
     Route: 048
     Dates: start: 20150505, end: 201505
  7. THERALENE [Concomitant]
     Active Substance: TRIMEPRAZINE
     Dosage: 20 GTT OF 40 MG/ML, 1X/DAY IN THE EVENING
     Route: 048
     Dates: start: 20150505
  8. VENLAFAXINE [Suspect]
     Active Substance: VENLAFAXINE HYDROCHLORIDE
     Dosage: 2 DF OF 75 MG, 1X/DAY IN THE MORNING
     Route: 048
     Dates: start: 20150505, end: 20150514
  9. FLECTOR /00372302/ [Concomitant]
     Active Substance: DICLOFENAC SODIUM
     Dosage: 1 DF, 2X/DAY IN THE MORNING AND IN THE EVENING
     Route: 003
     Dates: start: 20150505

REACTIONS (1)
  - Serotonin syndrome [Recovered/Resolved]

NARRATIVE: CASE EVENT DATE: 20150513
